FAERS Safety Report 9470205 (Version 1)
Quarter: 2013Q3

REPORT INFORMATION
  Report Type: Spontaneous
  Country: US (occurrence: US)
  Receive Date: 20130822
  Receipt Date: 20130822
  Transmission Date: 20140515
  Serious: Yes (Other)
  Sender: FDA-Public Use
  Company Number: US-BAYER-2013-099034

PATIENT
  Sex: Female

DRUGS (2)
  1. ALEVE CAPLET [Suspect]
     Indication: ARTHRALGIA
     Dosage: UNK
     Route: 048
  2. NAPROXEN [Suspect]
     Indication: ARTHRALGIA
     Dosage: 500 MG, UNK
     Dates: start: 2004

REACTIONS (5)
  - Hepatic cirrhosis [None]
  - Liver disorder [None]
  - Liver injury [None]
  - Liver disorder [None]
  - Liver scan abnormal [None]
